FAERS Safety Report 7150580-0 (Version None)
Quarter: 2010Q4

REPORT INFORMATION
  Report Type: 
  Country: None (occurrence: None)
  Receive Date: 20101126
  Receipt Date: 20101117
  Transmission Date: 20110411
  Serious: Yes (Hospitalization)
  Sender: FDA-Public Use
  Company Number: 2010129664

PATIENT
  Age: 48 Year
  Sex: Female

DRUGS (1)
  1. FRAGMIN [Suspect]
     Dosage: 7500 IU

REACTIONS (2)
  - INJURY ASSOCIATED WITH DEVICE [None]
  - SCAR [None]
